FAERS Safety Report 7592158-0 (Version None)
Quarter: 2011Q3

REPORT INFORMATION
  Report Type: 
  Country: None (occurrence: None)
  Receive Date: 20110705
  Receipt Date: 20110705
  Transmission Date: 20111222
  Serious: Yes (Other)
  Sender: FDA-Public Use
  Company Number: None

PATIENT
  Sex: Female
  Weight: 90.2658 kg

DRUGS (1)
  1. VIAGRA [Suspect]
     Dosage: 1 24HR
     Dates: start: 20110620, end: 20110621

REACTIONS (2)
  - GENITAL RASH [None]
  - VULVOVAGINAL PRURITUS [None]
